FAERS Safety Report 22686447 (Version 2)
Quarter: 2024Q1

REPORT INFORMATION
  Report Type: Spontaneous
  Country: US (occurrence: US)
  Receive Date: 20230710
  Receipt Date: 20240116
  Transmission Date: 20240410
  Serious: Yes (Other)
  Sender: FDA-Public Use
  Company Number: US-BAYER-2023A094361

PATIENT
  Age: 11 Year
  Sex: Male

DRUGS (4)
  1. KOVALTRY [Suspect]
     Active Substance: ANTIHEMOPHILIC FACTOR, HUMAN RECOMBINANT
     Dosage: 800 IU, QOD AND PRN
  2. KOVALTRY [Suspect]
     Active Substance: ANTIHEMOPHILIC FACTOR, HUMAN RECOMBINANT
     Dosage: 1600 IU, ONCE, USE 2 DOSES FOR EACH WRECK ON SCOOTER, PREVENTLY
     Dates: start: 20230622, end: 20230622
  3. KOVALTRY [Suspect]
     Active Substance: ANTIHEMOPHILIC FACTOR, HUMAN RECOMBINANT
     Dosage: 1600 IU, ONCE, USE 2 DOSES FOR EACH WRECK ON SCOOTER, PREVENTLY
     Dates: start: 20230629, end: 20230629
  4. KOVALTRY [Suspect]
     Active Substance: ANTIHEMOPHILIC FACTOR, HUMAN RECOMBINANT
     Dosage: 771 IU,1 DOSE GIVEN

REACTIONS (5)
  - Road traffic accident [None]
  - Road traffic accident [None]
  - Intentional dose omission [None]
  - Epistaxis [None]
  - Product dose omission issue [None]

NARRATIVE: CASE EVENT DATE: 20230622
